FAERS Safety Report 5404207-6 (Version None)
Quarter: 2007Q3

REPORT INFORMATION
  Report Type: 
  Country: None (occurrence: None)
  Receive Date: 20070802
  Receipt Date: 20070725
  Transmission Date: 20080115
  Serious: Yes (Other)
  Sender: FDA-Public Use
  Company Number: US-ROCHE-508576

PATIENT
  Age: 78 Year
  Sex: Female

DRUGS (1)
  1. BONIVA [Suspect]
     Indication: BONE DENSITY DECREASED
     Route: 065
     Dates: start: 20061205

REACTIONS (5)
  - AORTIC ANEURYSM [None]
  - BACK PAIN [None]
  - DIZZINESS [None]
  - FALL [None]
  - GROIN PAIN [None]
